FAERS Safety Report 19594196 (Version 1)
Quarter: 2021Q3

REPORT INFORMATION
  Report Type: Spontaneous
  Country: DE (occurrence: DE)
  Receive Date: 20210722
  Receipt Date: 20210722
  Transmission Date: 20211014
  Serious: Yes (Hospitalization)
  Sender: FDA-Public Use
  Company Number: DE-ACCORD-232345

PATIENT
  Age: 68 Year
  Sex: Male
  Weight: 62 kg

DRUGS (12)
  1. OXALIPLATIN. [Suspect]
     Active Substance: OXALIPLATIN
     Indication: PRODUCT USED FOR UNKNOWN INDICATION
     Route: 042
  2. PANTOPRAZOLE [Concomitant]
     Active Substance: PANTOPRAZOLE
     Dosage: 40 MG, 1?0?0?0,  TABLET
     Route: 048
  3. CANDECOR [Concomitant]
     Active Substance: CANDESARTAN CILEXETIL
     Dosage: COMP. 16MG / 12.5MG?,16/12.5 MG, 1?0?0?0,  TABLET
     Route: 048
  4. FOLINIC ACID [Concomitant]
     Active Substance: LEUCOVORIN
     Dosage: ACCORDING TO THE SCHEME, SOLUTION FOR INJECTION / INFUSION
     Route: 042
  5. ENOXAPARIN/ENOXAPARIN SODIUM [Concomitant]
     Active Substance: ENOXAPARIN\ENOXAPARIN SODIUM
     Dosage: 0.4 ML, 0?0?1?0, SOLUTION FOR INJECTION / INFUSION
     Route: 058
  6. LIPEGFILGRASTIM [Concomitant]
     Active Substance: LIPEGFILGRASTIM
     Dosage: ACCORDING TO THE SCHEME, INJECTION / INFUSION SOLUTION
     Route: 058
  7. FLUOROURACIL. [Suspect]
     Active Substance: FLUOROURACIL
     Indication: PRODUCT USED FOR UNKNOWN INDICATION
     Dosage: ACCORDING TO THE SCHEME, SOLUTION FOR INJECTION / INFUSION
     Route: 042
  8. IRINOTECAN [Suspect]
     Active Substance: IRINOTECAN
     Indication: PRODUCT USED FOR UNKNOWN INDICATION
     Dosage: ACCORDING TO THE SCHEME, SOLUTION FOR INJECTION / INFUSION
     Route: 042
  9. CREON [Concomitant]
     Active Substance: PANCRELIPASE AMYLASE\PANCRELIPASE LIPASE\PANCRELIPASE PROTEASE
     Dosage: 25000U, 1?1?1?0, CAPSULES
     Route: 048
  10. TOUJEO [Concomitant]
     Active Substance: INSULIN GLARGINE
     Dosage: 300 UNITS / ML SOLOSTAR 1.5ML PEN, 0?0?0?6, SOLUTION FOR INJECTION / INFUSION
     Route: 058
  11. LOPERAMIDE [Concomitant]
     Active Substance: LOPERAMIDE
     Dosage: AL ACUTE, IF NECESSARY, TABLET
     Route: 048
  12. NOVORAPID [Concomitant]
     Active Substance: INSULIN ASPART
     Dosage: 1000U. 100U./ML, ACCORDING TO THE SCHEME, SOLUTION FOR INJECTION / INFUSION
     Route: 058

REACTIONS (2)
  - Fatigue [Unknown]
  - Pyrexia [Unknown]
